FAERS Safety Report 9248779 (Version 1)
Quarter: 2013Q2

REPORT INFORMATION
  Report Type: Spontaneous
  Country: US (occurrence: None)
  Receive Date: 20130419
  Receipt Date: 20130419
  Transmission Date: 20140414
  Serious: Yes (Hospitalization)
  Sender: FDA-Public Use
  Company Number: None

PATIENT
  Age: 72 Year
  Sex: Female
  Weight: 80.65 kg

DRUGS (1)
  1. TREANDA [Suspect]
     Indication: CHRONIC LYMPHOCYTIC LEUKAEMIA
     Dosage: 150 MG D1+2 Q28D
     Dates: start: 20130319, end: 20130416

REACTIONS (4)
  - Dyspnoea [None]
  - Oxygen saturation decreased [None]
  - Blood pressure systolic increased [None]
  - Heart rate increased [None]
